FAERS Safety Report 20900637 (Version 1)
Quarter: 2022Q2

REPORT INFORMATION
  Report Type: Spontaneous
  Country: US (occurrence: None)
  Receive Date: 20220531
  Receipt Date: 20220531
  Transmission Date: 20220721
  Serious: Yes (Other)
  Sender: FDA-Public Use
  Company Number: None

PATIENT
  Age: 55 Year
  Sex: Female
  Weight: 97.2 kg

DRUGS (11)
  1. PAXLOVID [Suspect]
     Active Substance: NIRMATRELVIR\RITONAVIR
     Indication: COVID-19
     Dosage: FREQUENCY : TWICE A DAY;?
     Route: 048
     Dates: start: 20220510, end: 20220514
  2. TYLENOL [Concomitant]
     Active Substance: ACETAMINOPHEN
     Dates: start: 20210427
  3. CELEBREX [Concomitant]
     Active Substance: CELECOXIB
     Dates: start: 20220412
  4. BACLOFEN [Concomitant]
     Active Substance: BACLOFEN
     Dates: start: 20220301
  5. VITAMIN D [Concomitant]
     Active Substance: VITAMIN D NOS
     Dates: start: 20191223
  6. CANNABIS SATIVA SUBSP. INDICA TOP [Concomitant]
     Active Substance: CANNABIS SATIVA SUBSP. INDICA TOP
     Dates: start: 20210427
  7. MINOXIDIL TOPICAL [Concomitant]
     Active Substance: MINOXIDIL
     Dates: start: 20210427
  8. VITAMINS [Concomitant]
     Active Substance: VITAMINS
     Dates: start: 20190620
  9. OCREVUS [Concomitant]
     Active Substance: OCRELIZUMAB
     Dates: start: 20190620
  10. FISH OIL\OMEGA-3 FATTY ACIDS [Concomitant]
     Active Substance: FISH OIL\OMEGA-3 FATTY ACIDS
     Dates: start: 20210427
  11. TOPAMAX [Concomitant]
     Active Substance: TOPIRAMATE
     Dates: start: 20171219

REACTIONS (4)
  - Nausea [None]
  - Diarrhoea [None]
  - Tongue disorder [None]
  - Oral candidiasis [None]

NARRATIVE: CASE EVENT DATE: 20220512
